FAERS Safety Report 8866094 (Version 2)
Quarter: 2012Q4

REPORT INFORMATION
  Report Type: Report from Study
  Country: DE (occurrence: DE)
  Receive Date: 20121025
  Receipt Date: 20121101
  Transmission Date: 20130627
  Serious: Yes (Hospitalization)
  Sender: FDA-Public Use
  Company Number: DE-ROCHE-1147737

PATIENT
  Age: 32 Year
  Sex: Female
  Weight: 37 kg

DRUGS (8)
  1. BEVACIZUMAB [Suspect]
     Indication: BREAST CANCER
     Dosage: 400 mg and 100mg strength, last dose was administered on 02/Oct/2012.
     Route: 065
     Dates: start: 20120619
  2. DOXORUBICIN [Suspect]
     Indication: BREAST CANCER
     Dosage: last dose was administered on 09/oct/2012.
     Route: 065
     Dates: start: 20120619, end: 20121016
  3. DOXORUBICIN [Suspect]
     Route: 065
     Dates: start: 20121023
  4. PACLITAXEL [Suspect]
     Indication: BREAST CANCER
     Dosage: last dose was administered on 09/oct/2012.
     Route: 065
     Dates: start: 20120619, end: 20121016
  5. PACLITAXEL [Suspect]
     Route: 065
     Dates: start: 20121023
  6. TANTUM VERDE (GERMANY) [Concomitant]
     Route: 065
     Dates: start: 20121009
  7. NEUPOGEN 30 [Concomitant]
     Dosage: day 2-4
     Route: 065
     Dates: start: 20120814, end: 20121002
  8. PANTHENOL [Concomitant]
     Route: 065
     Dates: start: 20121008

REACTIONS (1)
  - General physical health deterioration [Recovering/Resolving]
